FAERS Safety Report 15381539 (Version 1)
Quarter: 2018Q3

REPORT INFORMATION
  Report Type: Spontaneous
  Country: US (occurrence: US)
  Receive Date: 20180913
  Receipt Date: 20180913
  Transmission Date: 20181010
  Serious: No
  Sender: FDA-Public Use
  Company Number: US-ASTELLAS-2018US004809

PATIENT
  Sex: Male

DRUGS (2)
  1. XTANDI [Suspect]
     Active Substance: ENZALUTAMIDE
     Route: 065
     Dates: start: 201706
  2. XTANDI [Suspect]
     Active Substance: ENZALUTAMIDE
     Indication: PROSTATE CANCER METASTATIC
     Route: 065
     Dates: start: 20170115

REACTIONS (7)
  - Fatigue [Unknown]
  - Nausea [Unknown]
  - Pain [Unknown]
  - Hyperhidrosis [Unknown]
  - Dyspnoea [Unknown]
  - Hot flush [Unknown]
  - Hypotonia [Unknown]
